FAERS Safety Report 6568173-2 (Version None)
Quarter: 2010Q1

REPORT INFORMATION
  Report Type: 
  Country: None (occurrence: None)
  Receive Date: 20100203
  Receipt Date: 20100129
  Transmission Date: 20100710
  Serious: Yes (Hospitalization)
  Sender: FDA-Public Use
  Company Number: BR-ROCHE-588349

PATIENT
  Sex: Female
  Weight: 60 kg

DRUGS (3)
  1. RIVOTRIL [Suspect]
     Indication: DEPRESSION
     Dosage: ANOTHER INDICATION: NOISE IN HEAD AND EARS
     Route: 048
     Dates: start: 20080101, end: 20100112
  2. AMITRIPTILIN [Suspect]
     Indication: FIBROMYALGIA
     Dosage: DRUG NAME: NEO AMITRIPTILIN, FREQUENCY: 5 TABLETS IN TOTAL
     Route: 065
     Dates: start: 20100101, end: 20100101
  3. DORMONID [Concomitant]
     Indication: INSOMNIA
     Route: 048

REACTIONS (6)
  - BENIGN UTERINE NEOPLASM [None]
  - FIBROMYALGIA [None]
  - HEADACHE [None]
  - INSOMNIA [None]
  - OSTEITIS [None]
  - TINNITUS [None]
